FAERS Safety Report 8335085-3 (Version None)
Quarter: 2012Q2

REPORT INFORMATION
  Report Type: 
  Country: None (occurrence: None)
  Receive Date: 20120503
  Receipt Date: 20100428
  Transmission Date: 20120825
  Serious: No
  Sender: FDA-Public Use
  Company Number: US-TEVA-2010002440

PATIENT
  Sex: Female
  Weight: 124.85 kg

DRUGS (9)
  1. PHENTERMINE [Concomitant]
     Indication: WEIGHT DECREASED
     Dosage: 37.5 MILLIGRAM;
     Route: 048
     Dates: start: 20091201
  2. NUVIGIL [Suspect]
     Indication: SOMNOLENCE
     Dosage: 250 MILLIGRAM;
     Route: 048
     Dates: start: 20100427
  3. PRILOSEC [Concomitant]
     Indication: DYSPEPSIA
     Route: 048
     Dates: start: 20100301
  4. CYMBALTA [Concomitant]
     Indication: ANXIETY
  5. VISTARIL [Concomitant]
     Indication: ANXIETY
     Dosage: 150 MILLIGRAM;
     Route: 048
     Dates: start: 20000101
  6. CYMBALTA [Concomitant]
     Indication: DEPRESSION
     Dosage: 60 MILLIGRAM;
     Route: 048
     Dates: start: 20050101
  7. NEURONTIN [Concomitant]
     Indication: NEURALGIA
     Dosage: 300 MILLIGRAM;
     Route: 048
     Dates: start: 20000101
  8. NEURONTIN [Concomitant]
     Indication: ANXIETY
  9. ULTRACET [Concomitant]
     Indication: NEURALGIA
     Dosage: 150 MILLIGRAM;
     Route: 048
     Dates: start: 20080101

REACTIONS (1)
  - NERVOUSNESS [None]
